FAERS Safety Report 16371112 (Version 2)
Quarter: 2019Q2

REPORT INFORMATION
  Report Type: Spontaneous
  Country: AR (occurrence: AR)
  Receive Date: 20190530
  Receipt Date: 20190626
  Transmission Date: 20190711
  Serious: Yes (Other)
  Sender: FDA-Public Use
  Company Number: AR-PFIZER INC-2019224753

PATIENT
  Age: 76 Year
  Sex: Female

DRUGS (5)
  1. LYRICA [Suspect]
     Active Substance: PREGABALIN
     Indication: PAIN IN EXTREMITY
     Dosage: 75 MG, UNK
     Dates: start: 20190301
  2. LOSARTAN. [Concomitant]
     Active Substance: LOSARTAN
     Dosage: 50 MG, DAILY
  3. ASPIRINA PREVENT [Concomitant]
     Active Substance: ASPIRIN
     Dosage: 100 MG, DAILY
  4. LYRICA [Suspect]
     Active Substance: PREGABALIN
     Indication: PERIPHERAL VASCULAR DISORDER
  5. T4 [Concomitant]
     Active Substance: LEVOTHYROXINE
     Dosage: 100 UG, DAILY

REACTIONS (3)
  - General physical health deterioration [Recovered/Resolved]
  - Loss of consciousness [Recovered/Resolved]
  - Dysstasia [Unknown]

NARRATIVE: CASE EVENT DATE: 20190301
